FAERS Safety Report 17991382 (Version 1)
Quarter: 2020Q3

REPORT INFORMATION
  Report Type: Report from Study
  Country: IN (occurrence: IN)
  Receive Date: 20200707
  Receipt Date: 20200707
  Transmission Date: 20201103
  Serious: Yes (Other)
  Sender: FDA-Public Use
  Company Number: NVSC2020IN189499

PATIENT
  Age: 50 Year
  Sex: Female
  Weight: 91 kg

DRUGS (1)
  1. GALVUS MET [Suspect]
     Active Substance: METFORMIN HYDROCHLORIDE\VILDAGLIPTIN
     Indication: DIABETES MELLITUS
     Dosage: 1 DF, BID (TAKING SINCE 3?4 YEARS)
     Route: 048

REACTIONS (4)
  - Pain in extremity [Unknown]
  - Rheumatoid arthritis [Unknown]
  - Dyslipidaemia [Unknown]
  - Overweight [Unknown]
